FAERS Safety Report 9565007 (Version 2)
Quarter: 2013Q4

REPORT INFORMATION
  Report Type: Report from Study
  Country: US (occurrence: US)
  Receive Date: 20130930
  Receipt Date: 20131031
  Transmission Date: 20140711
  Serious: Yes (Other)
  Sender: FDA-Public Use
  Company Number: US-ASTELLAS-2013US010133

PATIENT
  Age: 79 Year
  Sex: Female

DRUGS (2)
  1. ERLOTINIB TABLET [Suspect]
     Indication: NON-SMALL CELL LUNG CANCER
     Dosage: 150 MG, UID/QD
     Route: 048
     Dates: start: 20130909
  2. ERLOTINIB TABLET [Suspect]
     Dosage: UNK
     Route: 048
     Dates: start: 20130909

REACTIONS (1)
  - Blindness unilateral [Not Recovered/Not Resolved]
